FAERS Safety Report 23264210 (Version 2)
Quarter: 2024Q1

REPORT INFORMATION
  Report Type: Spontaneous
  Country: BR (occurrence: BR)
  Receive Date: 20231205
  Receipt Date: 20240102
  Transmission Date: 20240410
  Serious: Yes (Life-Threatening, Hospitalization, Other)
  Sender: FDA-Public Use
  Company Number: BR-PFIZER INC-PV202300195269

PATIENT
  Age: 62 Year
  Sex: Female
  Weight: 64 kg

DRUGS (8)
  1. MEROPENEM [Suspect]
     Active Substance: MEROPENEM
     Dosage: UNK
  2. MEROPENEM [Suspect]
     Active Substance: MEROPENEM
     Dosage: UNK, 3X/DAY (EVERY 8 H)
     Route: 042
     Dates: start: 20231008, end: 20231026
  3. VANCOMYCIN [Concomitant]
     Active Substance: VANCOMYCIN
     Indication: Post procedural infection
     Dosage: 1000 MG, 2X/DAY
     Dates: start: 20231002, end: 20231025
  4. DIPIRONA [METAMIZOLE SODIUM] [Concomitant]
     Indication: Analgesic therapy
     Dosage: 1000 MG, 4X/DAY
     Dates: start: 20231002, end: 20231101
  5. TRAMADOL [Concomitant]
     Active Substance: TRAMADOL\TRAMADOL HYDROCHLORIDE
     Indication: Analgesic therapy
     Dosage: 50 MG, 2X/DAY
     Dates: start: 20231002, end: 20231024
  6. ENOXAPARIN [Concomitant]
     Active Substance: ENOXAPARIN
     Indication: Thrombosis prophylaxis
     Dosage: UNK
     Dates: start: 20231002, end: 20231112
  7. PANTOPRAZOLE [Concomitant]
     Active Substance: PANTOPRAZOLE
     Indication: Gastritis prophylaxis
     Dosage: UNK
     Dates: start: 20231002, end: 20231113
  8. ONDANSETRON [Concomitant]
     Active Substance: ONDANSETRON
     Indication: Nausea
     Dosage: UNK
     Dates: start: 20231002, end: 20231102

REACTIONS (5)
  - Pruritus [Recovered/Resolved]
  - Respiratory distress [Recovered/Resolved]
  - Urticaria [Recovered/Resolved]
  - Dyspnoea [Recovered/Resolved]
  - Flushing [Recovered/Resolved]

NARRATIVE: CASE EVENT DATE: 20231022
